FAERS Safety Report 9323871 (Version 2)
Quarter: 2013Q2

REPORT INFORMATION
  Report Type: Spontaneous
  Country: IE (occurrence: IE)
  Receive Date: 20130603
  Receipt Date: 20130606
  Transmission Date: 20140414
  Serious: Yes (Other)
  Sender: FDA-Public Use
  Company Number: IE-BAYER-2013-044953

PATIENT
  Age: 64 Year
  Sex: Male

DRUGS (2)
  1. XARELTO [Suspect]
     Indication: AORTIC BYPASS
     Dosage: 10 MG, BID
     Route: 048
  2. ACETYLSALICYLIC ACID({=100 MG) [Interacting]
     Dosage: 75 MG, QD
     Route: 048

REACTIONS (3)
  - Rectal haemorrhage [Recovered/Resolved]
  - Colon adenoma [Recovered/Resolved]
  - Off label use [None]
